FAERS Safety Report 9025339 (Version 1)
Quarter: 2012Q4

REPORT INFORMATION
  Report Type: 
  Country: US (occurrence: US)
  Receive Date: 20121211
  Receipt Date: 20121211
  Transmission Date: 20130627
  Serious: No
  Sender: FDA-Public Use
  Company Number: PHEH2012US019041

PATIENT
  Age: 48 Year
  Sex: Female

DRUGS (4)
  1. TASIGNA [Suspect]
     Indication: CHRONIC MYELOID LEUKAEMIA
     Dosage: 400 mg, BID
     Route: 048
     Dates: start: 20120821, end: 20120905
  2. SERTRALINE [Concomitant]
  3. AMBIEN [Concomitant]
  4. HYDROXYUREA [Concomitant]

REACTIONS (4)
  - Electrocardiogram abnormal [Unknown]
  - Headache [Unknown]
  - Palpitations [Not Recovered/Not Resolved]
  - Ocular icterus [Unknown]
